FAERS Safety Report 9275838 (Version 2)
Quarter: 2013Q2

REPORT INFORMATION
  Report Type: Spontaneous
  Country: US (occurrence: US)
  Receive Date: 20130507
  Receipt Date: 20130530
  Transmission Date: 20140414
  Serious: Yes (Disabling, Other)
  Sender: FDA-Public Use
  Company Number: US-GALDERMA-US13001394

PATIENT
  Sex: Female
  Weight: 63.5 kg

DRUGS (3)
  1. ORACEA (DOXYCYCLINE, USP) CAPSULES 40 MG [Suspect]
     Indication: ROSACEA
     Route: 048
     Dates: start: 201208
  2. MIRENA INTRAUTERINE DEVICE [Concomitant]
     Route: 015
  3. DICLOFENAC SODIUM EXTENDED RELEASE [Concomitant]
     Route: 048

REACTIONS (6)
  - Benign intracranial hypertension [Recovered/Resolved]
  - Retinal oedema [Recovered/Resolved]
  - Dizziness [Recovered/Resolved]
  - Syncope [Recovered/Resolved]
  - Hypoaesthesia [Recovered/Resolved]
  - Headache [Recovered/Resolved]
